FAERS Safety Report 14614957 (Version 1)
Quarter: 2018Q1

REPORT INFORMATION
  Report Type: Spontaneous
  Country: FR (occurrence: FR)
  Receive Date: 20180308
  Receipt Date: 20180308
  Transmission Date: 20180509
  Serious: Yes (Hospitalization, Other)
  Sender: FDA-Public Use
  Company Number: FR-MERCK KGAA-2043337

PATIENT
  Sex: Female

DRUGS (1)
  1. NOVOTHYROX [Suspect]
     Active Substance: LEVOTHYROXINE SODIUM
     Indication: PRODUCT USED FOR UNKNOWN INDICATION

REACTIONS (18)
  - Chest pain [None]
  - Dizziness [None]
  - Skin disorder [None]
  - Dyspnoea [None]
  - Migraine [None]
  - Irritability [None]
  - Self esteem decreased [None]
  - Myocardial infarction [None]
  - Affective disorder [None]
  - Depression [None]
  - Fatigue [None]
  - Libido decreased [None]
  - Social avoidant behaviour [None]
  - Anger [None]
  - Movement disorder [None]
  - Loss of personal independence in daily activities [None]
  - Arthralgia [None]
  - Alopecia [None]
